FAERS Safety Report 15740426 (Version 1)
Quarter: 2018Q4

REPORT INFORMATION
  Report Type: Spontaneous
  Country: JP (occurrence: JP)
  Receive Date: 20181219
  Receipt Date: 20181219
  Transmission Date: 20190205
  Serious: Yes (Hospitalization)
  Sender: FDA-Public Use
  Company Number: JP-MYLANLABS-2018M1094100

PATIENT
  Age: 11 Year
  Sex: Male

DRUGS (9)
  1. THIOTEPA. [Concomitant]
     Active Substance: THIOTEPA
     Indication: MEDULLOBLASTOMA
     Dosage: 1 CYCLE WITH MELPHALAN; CUMULATIVE DOSE FOR TREATMENT OF MEDULLOBLASTOMA: 800MG/M2
     Route: 065
  2. VINCRISTINE [Concomitant]
     Active Substance: VINCRISTINE
     Indication: MEDULLOBLASTOMA
     Dosage: 4 CYCLES WITH CYCLOPHOSPHAMIDE, CISPLATIN AND ETOPOSIDE; CUMULATIVE DOSE FOR TREATMENT OF MEDULLO...
     Route: 065
  3. CISPLATIN. [Concomitant]
     Active Substance: CISPLATIN
     Indication: MEDULLOBLASTOMA
     Dosage: 4 CYCLES WITH VINCRISTINE, CYCLOPHOSPHAMIDE AND ETOPOSIDE; CUMULATIVE DOSE FOR TREATMENT OF MEDUL...
     Route: 065
  4. ETOPOSIDE. [Suspect]
     Active Substance: ETOPOSIDE
     Indication: METASTASIS
  5. ETOPOSIDE. [Suspect]
     Active Substance: ETOPOSIDE
     Indication: MEDULLOBLASTOMA
     Dosage: 4 CYCLES WITH CYCLOPHOSPHAMIDE, VINCRISTINE AND CISPLATIN INITIALLY FOLLOWED BY TREATMENT FOR ANO...
     Route: 065
  6. MELPHALAN. [Concomitant]
     Active Substance: MELPHALAN
     Indication: MEDULLOBLASTOMA
     Dosage: 1 CYCLE WITH THIOTEPA; CUMULATIVE DOSE FOR TREATMENT OF MEDULLOBLASTOMA: 280MG/M2
     Route: 065
  7. DEXAMETHASONE. [Concomitant]
     Active Substance: DEXAMETHASONE
     Indication: MEDULLOBLASTOMA
     Dosage: SIX INJECTIONS
     Route: 037
  8. CYCLOPHOSPHAMIDE. [Suspect]
     Active Substance: CYCLOPHOSPHAMIDE
     Indication: MEDULLOBLASTOMA
     Dosage: 4 CYCLES OF VINCRISTINE, CISPLATIN AND ETOPOSIDE
     Route: 065
  9. METHOTREXATE. [Concomitant]
     Active Substance: METHOTREXATE
     Indication: MEDULLOBLASTOMA
     Dosage: SIX INJECTIONS; CUMULATIVE DOSE FOR TREATMENT OF MEDULLOBLASTOMA: 72MG/BODY
     Route: 037

REACTIONS (1)
  - Osteosarcoma [Recovered/Resolved]
